FAERS Safety Report 9231949 (Version 2)
Quarter: 2013Q4

REPORT INFORMATION
  Report Type: Report from Study
  Country: IE (occurrence: IE)
  Receive Date: 20130415
  Receipt Date: 20131015
  Transmission Date: 20140711
  Serious: Yes (Death, Other)
  Sender: FDA-Public Use
  Company Number: IE-ELI_LILLY_AND_COMPANY-IE201304003322

PATIENT
  Sex: Female

DRUGS (6)
  1. TERIPARATIDE [Suspect]
     Indication: OSTEOPOROSIS
     Dosage: 20 UG, QD
     Route: 058
     Dates: start: 20120418, end: 201207
  2. BETAHISTINE [Concomitant]
  3. WARFARIN [Concomitant]
  4. FRUMIL [Concomitant]
  5. VERSATIS [Concomitant]
  6. CALCIUM [Concomitant]

REACTIONS (1)
  - Cardiac failure congestive [Fatal]
